FAERS Safety Report 17392798 (Version 1)
Quarter: 2020Q1

REPORT INFORMATION
  Report Type: Spontaneous
  Country: US (occurrence: US)
  Receive Date: 20200207
  Receipt Date: 20200207
  Transmission Date: 20200409
  Serious: No
  Sender: FDA-Public Use
  Company Number: US-GLAXOSMITHKLINE-US2020017509

PATIENT
  Sex: Female

DRUGS (1)
  1. BENLYSTA [Suspect]
     Active Substance: BELIMUMAB
     Indication: PRODUCT USED FOR UNKNOWN INDICATION
     Dosage: UNK UNK, WE
     Route: 058
     Dates: start: 2019

REACTIONS (4)
  - Injection site erythema [Not Recovered/Not Resolved]
  - Injection site pain [Unknown]
  - Injection site bruising [Unknown]
  - Injection site reaction [Unknown]
